FAERS Safety Report 23648349 (Version 3)
Quarter: 2024Q2

REPORT INFORMATION
  Report Type: Spontaneous
  Country: US (occurrence: US)
  Receive Date: 20240319
  Receipt Date: 20240430
  Transmission Date: 20240716
  Serious: No
  Sender: FDA-Public Use
  Company Number: US-ABBVIE-5680809

PATIENT
  Age: 55 Year
  Sex: Female

DRUGS (1)
  1. FLUOROMETHOLONE [Suspect]
     Active Substance: FLUOROMETHOLONE
     Indication: Product used for unknown indication
     Dosage: 0.1%?ONE DROP ON THE LEFT EYE?FORM STRENGTH: FORM STRENGTH: 0.1 PERCENT?DURATION TEXT: SINCE 2020...
     Route: 047

REACTIONS (3)
  - Abnormal sensation in eye [Recovered/Resolved]
  - Product contamination physical [Unknown]
  - Poor quality product administered [Unknown]

NARRATIVE: CASE EVENT DATE: 20240301
